FAERS Safety Report 8432180-5 (Version None)
Quarter: 2012Q2

REPORT INFORMATION
  Report Type: 
  Country: None (occurrence: None)
  Receive Date: 20120613
  Receipt Date: 20120606
  Transmission Date: 20120825
  Serious: Yes (Other)
  Sender: FDA-Public Use
  Company Number: PHHY2012JP046819

PATIENT
  Sex: Female

DRUGS (4)
  1. GILENYA [Suspect]
     Indication: MULTIPLE SCLEROSIS
     Dosage: 0.5 MG, QD
     Route: 048
     Dates: start: 20120515, end: 20120517
  2. IDOMETHINE [Concomitant]
     Dosage: UNK UKN, UNK
     Route: 061
  3. LENDORMIN [Concomitant]
     Dosage: 0.25 MG, UNK
     Route: 048
  4. LYRICA [Concomitant]
     Dosage: 450 MG, UNK
     Route: 048

REACTIONS (4)
  - HEART RATE DECREASED [None]
  - ATRIOVENTRICULAR BLOCK SECOND DEGREE [None]
  - CENTRAL NERVOUS SYSTEM LESION [None]
  - ELECTROCARDIOGRAM PR PROLONGATION [None]
